FAERS Safety Report 24130455 (Version 2)
Quarter: 2024Q3

REPORT INFORMATION
  Report Type: Report from Study
  Country: US (occurrence: US)
  Receive Date: 20240724
  Receipt Date: 20240812
  Transmission Date: 20241017
  Serious: Yes (Hospitalization, Other)
  Sender: UCB
  Company Number: US-UCBSA-2024028877

PATIENT
  Age: 24 Year
  Sex: Female

DRUGS (4)
  1. BIMEKIZUMAB [Suspect]
     Active Substance: BIMEKIZUMAB
     Indication: Psoriasis
     Dosage: 320 MILLIGRAM, EV 4 WEEKS AT WEEKS 0, 4, 8, 12, AND 16
     Route: 058
     Dates: start: 20240508
  2. ACETYLCYSTEINE [Concomitant]
     Active Substance: ACETYLCYSTEINE
     Indication: Product used for unknown indication
     Dosage: UNK, ONCE DAILY (QD)
  3. COENZYME Q10 [Concomitant]
     Active Substance: DIETARY SUPPLEMENT\UBIDECARENONE
     Indication: Product used for unknown indication
     Dosage: UNK, ONCE DAILY (QD)
  4. MOUNJARO [Concomitant]
     Active Substance: TIRZEPATIDE
     Indication: Product used for unknown indication
     Dosage: UNK
     Dates: end: 202406

REACTIONS (6)
  - Rhabdomyolysis [Recovered/Resolved]
  - Injection site bruising [Not Recovered/Not Resolved]
  - COVID-19 [Not Recovered/Not Resolved]
  - Psoriasis [Not Recovered/Not Resolved]
  - Therapeutic response shortened [Unknown]
  - Product use issue [Unknown]

NARRATIVE: CASE EVENT DATE: 20240606
